FAERS Safety Report 5227314-X (Version None)
Quarter: 2007Q1

REPORT INFORMATION
  Report Type: 
  Country: None (occurrence: None)
  Receive Date: 20070202
  Receipt Date: 20070119
  Transmission Date: 20070707
  Serious: Yes (Other)
  Sender: FDA-Public Use
  Company Number: US-ELI_LILLY_AND_COMPANY-US200701004381

PATIENT
  Age: 24 Year
  Sex: Male

DRUGS (1)
  1. STRATTERA [Suspect]
     Dosage: 60 MG, 2/D
     Dates: start: 20060523, end: 20061121

REACTIONS (3)
  - PALPITATIONS [None]
  - PRESCRIBED OVERDOSE [None]
  - SUPRAVENTRICULAR TACHYCARDIA [None]
